FAERS Safety Report 7991816-3 (Version None)
Quarter: 2011Q4

REPORT INFORMATION
  Report Type: 
  Country: None (occurrence: None)
  Receive Date: 20111219
  Receipt Date: 20111215
  Transmission Date: 20120403
  Serious: No
  Sender: FDA-Public Use
  Company Number: US-PFIZER INC-2011306435

PATIENT
  Age: 74 Year
  Sex: Female
  Weight: 56.689 kg

DRUGS (1)
  1. CELEBREX [Suspect]
     Indication: BACK PAIN
     Dosage: 200 MG, 2X/DAY
     Route: 048
     Dates: start: 20111201

REACTIONS (5)
  - ASTHENIA [None]
  - DIZZINESS [None]
  - SNEEZING [None]
  - INFLUENZA LIKE ILLNESS [None]
  - RHINORRHOEA [None]
